FAERS Safety Report 5145127-4 (Version None)
Quarter: 2006Q4

REPORT INFORMATION
  Report Type: 
  Country: None (occurrence: None)
  Receive Date: 20061107
  Receipt Date: 20060717
  Transmission Date: 20070319
  Serious: Yes (Hospitalization)
  Sender: FDA-Public Use
  Company Number: US-ELI_LILLY_AND_COMPANY-US200607003047

PATIENT
  Age: 76 Year
  Sex: Female

DRUGS (1)
  1. FORTEO [Suspect]
     Indication: OSTEOPOROSIS
     Dosage: UNK, UNK
     Dates: start: 20050101

REACTIONS (5)
  - ASTHENIA [None]
  - COUGH [None]
  - DIVERTICULUM INTESTINAL HAEMORRHAGIC [None]
  - DYSPNOEA [None]
  - PNEUMONIA [None]
